FAERS Safety Report 21160547 (Version 1)
Quarter: 2022Q3

REPORT INFORMATION
  Report Type: Spontaneous
  Country: US (occurrence: None)
  Receive Date: 20220801
  Receipt Date: 20220801
  Transmission Date: 20221027
  Serious: No
  Sender: FDA-Public Use
  Company Number: None

PATIENT
  Age: 55 Year
  Sex: Male

DRUGS (1)
  1. HUMIRA [Suspect]
     Active Substance: ADALIMUMAB
     Indication: Rheumatoid arthritis
     Dosage: FREQUENCY : EVERY OTHER WEEK;?
     Route: 058
     Dates: start: 20220426, end: 20220716

REACTIONS (6)
  - Drug ineffective [None]
  - Arthralgia [None]
  - Muscle twitching [None]
  - Muscular weakness [None]
  - Pain [None]
  - Joint swelling [None]

NARRATIVE: CASE EVENT DATE: 20220716
